FAERS Safety Report 7909734-5 (Version None)
Quarter: 2011Q4

REPORT INFORMATION
  Report Type: 
  Country: None (occurrence: None)
  Receive Date: 20111111
  Receipt Date: 20111101
  Transmission Date: 20120403
  Serious: Yes (Hospitalization, Other)
  Sender: FDA-Public Use
  Company Number: US-PFIZER INC-2011267408

PATIENT
  Age: 56 Year
  Sex: Female
  Weight: 61.1 kg

DRUGS (2)
  1. ALIMTA [Suspect]
     Indication: NON-SMALL CELL LUNG CANCER
     Dosage: 500 MG/M2, CYCLE=21 DAYS, IV OVER 10 MIN ON DAY 1
     Route: 042
     Dates: start: 20110207, end: 20110926
  2. SUNITINIB MALATE [Suspect]
     Indication: NON-SMALL CELL LUNG CANCER
     Dosage: 37.5 MG, CYCLE=21 DAYS,QD
     Route: 048
     Dates: start: 20110207, end: 20111002

REACTIONS (4)
  - PLATELET COUNT DECREASED [None]
  - FACE OEDEMA [None]
  - DYSPNOEA [None]
  - ANAEMIA [None]
